FAERS Safety Report 26038883 (Version 1)
Quarter: 2025Q4

REPORT INFORMATION
  Report Type: Spontaneous
  Country: US (occurrence: US)
  Receive Date: 20251113
  Receipt Date: 20251113
  Transmission Date: 20260118
  Serious: Yes (Other)
  Sender: COOPERSURGICAL
  Company Number: US-COOPERSURGICAL, INC.-2025CPS007835

PATIENT
  Age: 35 Year
  Sex: Female
  Weight: 86.168 kg

DRUGS (1)
  1. PARAGARD T 380A [Suspect]
     Active Substance: COPPER
     Indication: Contraception
     Dosage: UNK
     Route: 015
     Dates: start: 20150515

REACTIONS (22)
  - Abortion spontaneous [Recovered/Resolved]
  - Subchorionic haematoma [Recovered/Resolved]
  - Surgery [Recovered/Resolved]
  - Device breakage [Not Recovered/Not Resolved]
  - Foreign body in reproductive tract [Not Recovered/Not Resolved]
  - Complication of device removal [Not Recovered/Not Resolved]
  - Embedded device [Not Recovered/Not Resolved]
  - Vaginal haemorrhage [Recovered/Resolved]
  - Procedural haemorrhage [Recovered/Resolved]
  - Procedural pain [Recovered/Resolved]
  - Coital bleeding [Unknown]
  - Device issue [Not Recovered/Not Resolved]
  - Palpitations [Recovering/Resolving]
  - Chest pain [Recovering/Resolving]
  - Dyspnoea exertional [Recovering/Resolving]
  - Muscle spasms [Unknown]
  - Dyspareunia [Unknown]
  - Device expulsion [Not Recovered/Not Resolved]
  - Dysmenorrhoea [Unknown]
  - Heavy menstrual bleeding [Unknown]
  - Incision site discharge [Recovered/Resolved]
  - Pain [Not Recovered/Not Resolved]

NARRATIVE: CASE EVENT DATE: 20190101
